FAERS Safety Report 8669077 (Version 3)
Quarter: 2012Q4

REPORT INFORMATION
  Report Type: 
  Country: US (occurrence: US)
  Receive Date: 20120717
  Receipt Date: 20120914
  Transmission Date: 20130627
  Serious: Yes (Other)
  Sender: FDA-Public Use
  Company Number: US-ASTRAZENECA-2012SE45292

PATIENT
  Age: 88 Year
  Sex: Male

DRUGS (7)
  1. SYMBICORT [Suspect]
     Indication: CHRONIC OBSTRUCTIVE PULMONARY DISEASE
     Dosage: 160 MCGS TWO TIMES A DAY
     Route: 055
  2. SYMBICORT [Suspect]
     Indication: CHRONIC OBSTRUCTIVE PULMONARY DISEASE
     Dosage: 80/4.5 MGS TWO TIMES A DAY
     Route: 055
  3. PREDNISONE [Concomitant]
     Route: 048
  4. POTASSIUM [Concomitant]
     Dosage: 10 meq daily
     Route: 048
  5. HCTZ [Concomitant]
     Route: 048
  6. LISINOPRIL [Concomitant]
     Route: 048
  7. ISOSORBIDE [Concomitant]
     Route: 048

REACTIONS (2)
  - Dyspnoea [Recovered/Resolved]
  - Circumstance or information capable of leading to medication error [Unknown]
